FAERS Safety Report 21776620 (Version 1)
Quarter: 2022Q4

REPORT INFORMATION
  Report Type: Spontaneous
  Country: US (occurrence: US)
  Receive Date: 20221226
  Receipt Date: 20221226
  Transmission Date: 20230112
  Serious: No
  Sender: FDA-Public Use
  Company Number: US-SA-2022SA504095

PATIENT
  Age: 17 Year
  Sex: Male

DRUGS (2)
  1. ELOCTATE [Suspect]
     Active Substance: EFMOROCTOCOG ALFA
     Dosage: 4300 IU ((+/- 10%), QD
  2. ELOCTATE [Suspect]
     Active Substance: EFMOROCTOCOG ALFA
     Dosage: 4300 IU ((+/- 10%), QD

REACTIONS (1)
  - Wisdom teeth removal [Unknown]

NARRATIVE: CASE EVENT DATE: 20221207
